FAERS Safety Report 9442118 (Version 1)
Quarter: 2013Q3

REPORT INFORMATION
  Report Type: Spontaneous
  Country: JP (occurrence: JP)
  Receive Date: 20130806
  Receipt Date: 20130806
  Transmission Date: 20140515
  Serious: Yes (Hospitalization, Other)
  Sender: FDA-Public Use
  Company Number: PHHY2013JP083683

PATIENT
  Sex: Male

DRUGS (6)
  1. DIOVAN [Suspect]
     Indication: HYPERTENSION
     Dosage: 80 MG, DAILY
     Route: 048
  2. SIGMART [Concomitant]
     Dosage: UNK UKN, UNK
     Route: 048
  3. TAKEPRON [Concomitant]
     Dosage: UNK UKN, UNK
     Route: 048
  4. BAYASPIRIN [Concomitant]
     Dosage: UNK UKN, UNK
     Route: 048
  5. PLAVIX [Concomitant]
     Dosage: UNK UKN, UNK
     Route: 048
  6. CONIEL [Concomitant]
     Dosage: UNK UKN, UNK
     Route: 048

REACTIONS (6)
  - Myocardial infarction [Unknown]
  - Angina pectoris [Unknown]
  - Tachycardia [Unknown]
  - General physical health deterioration [Unknown]
  - Palpitations [Unknown]
  - Blood pressure decreased [Unknown]
